FAERS Safety Report 11392426 (Version 1)
Quarter: 2015Q3

REPORT INFORMATION
  Report Type: Spontaneous
  Country: BG (occurrence: None)
  Receive Date: 20150814
  Receipt Date: 20150814
  Transmission Date: 20151125
  Serious: Yes (Other)
  Sender: FDA-Public Use
  Company Number: KAD201508-002547

PATIENT
  Age: 76 Year
  Sex: Male

DRUGS (5)
  1. TAMSULOSIN [Concomitant]
     Active Substance: TAMSULOSIN
  2. INSULIN [Concomitant]
     Active Substance: INSULIN NOS
  3. VIEKIRAX (OMBITASVIR, PARITAPREVIR, RITONAVIR) [Suspect]
     Active Substance: OMBITASVIR\PARITAPREVIR\RITONAVIR
     Indication: HEPATITIS C
     Route: 048
     Dates: start: 201501
  4. EXVIERA (DASABUVIR) [Suspect]
     Active Substance: DASABUVIR
     Indication: HEPATITIS C
     Route: 048
     Dates: start: 201501
  5. RIBAVIRIN (RIBAVIRIN) [Suspect]
     Active Substance: RIBAVIRIN
     Indication: HEPATITIS C
     Route: 048
     Dates: start: 201501

REACTIONS (6)
  - Drug interaction [None]
  - Urinary tract infection [None]
  - Alanine aminotransferase increased [None]
  - Total bile acids increased [None]
  - Prothrombin time prolonged [None]
  - Hyperbilirubinaemia [None]
